FAERS Safety Report 4828714-X (Version None)
Quarter: 2005Q4

REPORT INFORMATION
  Report Type: 
  Country: None (occurrence: None)
  Receive Date: 20051115
  Receipt Date: 20051109
  Transmission Date: 20060501
  Serious: Yes (Hospitalization, Disabling, Other)
  Sender: FDA-Public Use
  Company Number: US-MERCK-0511USA01654

PATIENT
  Age: 50 Year
  Sex: Male
  Weight: 91 kg

DRUGS (24)
  1. EFFEXOR XR [Concomitant]
     Route: 065
  2. ELAVIL [Concomitant]
     Route: 065
  3. GLUCOPHAGE [Concomitant]
     Route: 065
  4. GLYBURIDE [Concomitant]
     Route: 065
  5. HYDROCODONE HYDROCHLORIDE [Concomitant]
     Route: 065
  6. [THERAPY UNSPECIFIED] [Concomitant]
     Route: 065
  7. MONOPRIL [Concomitant]
     Route: 065
  8. NEURONTIN [Concomitant]
     Route: 065
  9. NITROGLYCERIN [Concomitant]
     Route: 065
  10. PAMELOR [Concomitant]
     Route: 065
  11. PLAVIX [Concomitant]
     Route: 065
  12. PRECOSE [Concomitant]
     Route: 065
  13. PRINIVIL [Concomitant]
     Route: 065
  14. PROTONIX [Concomitant]
     Route: 065
  15. RELAFEN [Concomitant]
     Route: 065
  16. ZOCOR [Concomitant]
     Route: 065
  17. ZOSTRIX [Concomitant]
     Route: 065
  18. VIOXX [Suspect]
     Indication: BACK PAIN
     Route: 048
     Dates: start: 20001215, end: 20030403
  19. AMBIEN [Concomitant]
     Route: 065
  20. ASPIRIN [Concomitant]
     Route: 065
  21. AVANDIA [Concomitant]
     Route: 065
  22. DARVOCET-N 100 [Concomitant]
     Route: 065
  23. DOCUSATE SODIUM [Concomitant]
     Route: 065
  24. DURAGESIC-100 [Concomitant]
     Route: 065

REACTIONS (9)
  - ARRHYTHMIA [None]
  - CARDIAC ARREST [None]
  - CARDIAC DISORDER [None]
  - CARDIOVASCULAR DISORDER [None]
  - CARPAL TUNNEL SYNDROME [None]
  - CEREBROVASCULAR ACCIDENT [None]
  - CHEST PAIN [None]
  - MYOCARDIAL INFARCTION [None]
  - ROAD TRAFFIC ACCIDENT [None]
